FAERS Safety Report 7764782-3 (Version None)
Quarter: 2011Q3

REPORT INFORMATION
  Report Type: 
  Country: None (occurrence: None)
  Receive Date: 20110921
  Receipt Date: 20110921
  Transmission Date: 20111222
  Serious: Yes (Life-Threatening, Hospitalization, Disabling)
  Sender: FDA-Public Use
  Company Number: None

PATIENT
  Age: 50 Year
  Sex: Female
  Weight: 83.914 kg

DRUGS (1)
  1. CEFUROXIME [Suspect]
     Indication: HYSTERECTOMY
     Dosage: 1 TABLET
     Route: 048
     Dates: start: 20110902, end: 20110909

REACTIONS (8)
  - CLOSTRIDIUM DIFFICILE COLITIS [None]
  - PYREXIA [None]
  - DEHYDRATION [None]
  - NAUSEA [None]
  - PAIN [None]
  - ABDOMINAL PAIN UPPER [None]
  - ABDOMINAL PAIN [None]
  - HEADACHE [None]
